FAERS Safety Report 6386939-9 (Version None)
Quarter: 2009Q4

REPORT INFORMATION
  Report Type: 
  Country: None (occurrence: None)
  Receive Date: 20091002
  Receipt Date: 20090930
  Transmission Date: 20100525
  Serious: Yes (Hospitalization, Other)
  Sender: FDA-Public Use
  Company Number: KZ-JNJFOC-20080700433

PATIENT
  Sex: Female
  Weight: 52.5 kg

DRUGS (2)
  1. PALIPERIDONE [Suspect]
     Indication: SCHIZOPHRENIA
  2. RISPERIDONE [Suspect]
     Indication: SCHIZOPHRENIA
     Route: 048
     Dates: start: 20080425, end: 20080622

REACTIONS (2)
  - NEUROSIS [None]
  - SCHIZOPHRENIA [None]
